FAERS Safety Report 10595441 (Version 4)
Quarter: 2015Q2

REPORT INFORMATION
  Report Type: Spontaneous
  Country: DE (occurrence: None)
  Receive Date: 20141118
  Receipt Date: 20150422
  Transmission Date: 20150821
  Serious: Yes (Other)
  Sender: FDA-Public Use
  Company Number: 2014-24621

PATIENT
  Age: 36 Year
  Sex: Female
  Weight: 70 kg

DRUGS (1)
  1. ULIPRISTAL ACETATE [Suspect]
     Active Substance: ULIPRISTAL ACETATE
     Indication: UTERINE LEIOMYOMA
     Route: 048
     Dates: start: 20130418, end: 20130711

REACTIONS (6)
  - Placenta accreta [None]
  - Maternal exposure before pregnancy [None]
  - Premature delivery [None]
  - Placenta praevia haemorrhage [None]
  - Caesarean section [None]
  - Premature rupture of membranes [None]

NARRATIVE: CASE EVENT DATE: 20140911
